FAERS Safety Report 15373105 (Version 1)
Quarter: 2018Q4

REPORT INFORMATION
  Report Type: Spontaneous
  Country: IL (occurrence: IL)
  Receive Date: 20180912
  Receipt Date: 20180912
  Transmission Date: 20190204
  Serious: Yes (Other)
  Sender: FDA-Public Use
  Company Number: IL-TEVA-2018-IL-952372

PATIENT
  Age: 78 Year
  Sex: Male

DRUGS (1)
  1. PENIBRIN 2 G [Suspect]
     Active Substance: AMPICILLIN SODIUM
     Route: 065

REACTIONS (3)
  - Proctalgia [Unknown]
  - Diarrhoea [Unknown]
  - Abdominal pain [Unknown]
